FAERS Safety Report 4324870-0 (Version None)
Quarter: 2004Q1

REPORT INFORMATION
  Report Type: 
  Country: None (occurrence: None)
  Receive Date: 20040323
  Receipt Date: 20031212
  Transmission Date: 20041129
  Serious: No
  Sender: FDA-Public Use
  Company Number: M03-341-120

PATIENT
  Age: 42 Year
  Sex: Male

DRUGS (13)
  1. VELCADE [Suspect]
     Indication: MULTIPLE MYELOMA
     Dosage: 1.3MG/M2: INTRAVENOUS BOLUS
     Route: 040
     Dates: start: 20030805
  2. COLACE (DOCUSATE SODIUM) [Concomitant]
  3. DEXAMETHASONE [Concomitant]
  4. DULCOLAX [Concomitant]
  5. EPOGEN [Concomitant]
  6. EPOGEN [Concomitant]
  7. OMEPRAZOLE [Concomitant]
  8. OXYCONTIN [Concomitant]
  9. RABEPRAZOLE SODIUM [Concomitant]
  10. SENNA [Concomitant]
  11. SEPTRA [Concomitant]
  12. TRAZODONE HCL [Concomitant]
  13. VICODIN [Concomitant]

REACTIONS (1)
  - RASH ERYTHEMATOUS [None]
